FAERS Safety Report 24611482 (Version 1)
Quarter: 2024Q4

REPORT INFORMATION
  Report Type: Spontaneous
  Country: US (occurrence: US)
  Receive Date: 20241113
  Receipt Date: 20241113
  Transmission Date: 20250115
  Serious: Yes (Hospitalization, Other)
  Sender: DR REDDYS
  Company Number: US-DRL-USA-LIT/USA/24/0016743

PATIENT
  Age: 50 Year
  Sex: Male

DRUGS (9)
  1. SEVELAMER [Suspect]
     Active Substance: SEVELAMER
     Indication: Cholangiocarcinoma
     Dosage: 13.5 MG/DAY
     Dates: start: 202006
  2. SEVELAMER [Suspect]
     Active Substance: SEVELAMER
     Dosage: LOWER DOSE OF 9 MG/DAY
  3. GEMCITABINE [Suspect]
     Active Substance: GEMCITABINE
     Indication: Cholangiocarcinoma
     Dates: start: 201807
  4. CARBOPLATIN [Suspect]
     Active Substance: CARBOPLATIN
     Indication: Cholangiocarcinoma
     Dates: start: 201807
  5. FLUOROURACIL [Suspect]
     Active Substance: FLUOROURACIL
     Indication: Cholangiocarcinoma
     Dates: start: 201912
  6. IRINOTECAN [Suspect]
     Active Substance: IRINOTECAN
     Indication: Cholangiocarcinoma
     Dates: start: 201912
  7. NIVOLUMAB [Suspect]
     Active Substance: NIVOLUMAB
     Indication: Cholangiocarcinoma
     Dates: start: 201912
  8. PEMIGATINIB [Suspect]
     Active Substance: PEMIGATINIB
     Indication: Cholangiocarcinoma
     Dosage: LOWER DOSE OF 9 MG/DAY
     Dates: start: 202006
  9. PEMIGATINIB [Suspect]
     Active Substance: PEMIGATINIB
     Dosage: 13.5 MG/DAY
     Dates: start: 202006

REACTIONS (4)
  - Calciphylaxis [Unknown]
  - Malignant neoplasm progression [Unknown]
  - Drug ineffective [Unknown]
  - Product use in unapproved indication [Unknown]
